FAERS Safety Report 6442457-0 (Version None)
Quarter: 2009Q4

REPORT INFORMATION
  Report Type: 
  Country: None (occurrence: None)
  Receive Date: 20091112
  Receipt Date: 20091104
  Transmission Date: 20100525
  Serious: Yes (Death, Other)
  Sender: FDA-Public Use
  Company Number: 2009SP034680

PATIENT
  Age: 61 Year
  Sex: Male

DRUGS (1)
  1. ONCOTICE [Suspect]
     Indication: DRUG USE FOR UNKNOWN INDICATION
     Dosage: URH
     Dates: start: 20090907

REACTIONS (3)
  - BOVINE TUBERCULOSIS [None]
  - MULTI-ORGAN FAILURE [None]
  - SEPTIC SHOCK [None]
